FAERS Safety Report 17473545 (Version 2)
Quarter: 2020Q4

REPORT INFORMATION
  Report Type: Report from Study
  Country: CA (occurrence: CA)
  Receive Date: 20200228
  Receipt Date: 20201118
  Transmission Date: 20210113
  Serious: Yes (Other)
  Sender: FDA-Public Use
  Company Number: CA-JNJFOC-20190638531

PATIENT
  Age: 71 Year
  Sex: Male

DRUGS (3)
  1. BCG [Concomitant]
     Active Substance: BCG VACCINE
     Indication: URINARY BLADDER POLYP
  2. STELARA [Suspect]
     Active Substance: USTEKINUMAB
     Indication: PSORIASIS
     Dosage: STRENGTH = 90 MG
     Route: 058
     Dates: start: 20130403
  3. STELARA [Suspect]
     Active Substance: USTEKINUMAB

REACTIONS (3)
  - Psoriasis [Unknown]
  - Pneumonia [Unknown]
  - Urinary bladder polyp [Unknown]
